FAERS Safety Report 4538360-3 (Version None)
Quarter: 2004Q4

REPORT INFORMATION
  Report Type: 
  Country: None (occurrence: None)
  Receive Date: 20041217
  Receipt Date: 20041201
  Transmission Date: 20050328
  Serious: Yes (Hospitalization, Disabling)
  Sender: FDA-Public Use
  Company Number: WAES 0412FRA00013

PATIENT
  Age: 44 Year
  Sex: Male

DRUGS (6)
  1. CRIXIVAN [Suspect]
     Indication: HIV INFECTION
     Dosage: 800 MG/ TID PO
     Route: 048
     Dates: start: 19960101
  2. TAB NELFINAVIR MESYLATE [Suspect]
     Indication: HIV INFECTION
     Dosage: 2250 MG PO
     Route: 048
     Dates: start: 19971201, end: 20000801
  3. CAP STAVUDINE [Suspect]
     Indication: HIV INFECTION
     Dosage: 40 MG/ BID PO
     Route: 048
  4. TAB LAMIVUDINE [Suspect]
     Indication: HIV INFECTION
     Dosage: 150 MG/ BID PO
     Route: 048
  5. PREDNISONE TAB [Suspect]
     Indication: SARCOIDOSIS
     Dosage: 10-90 MG/ DAILY PO
     Route: 048
     Dates: start: 19980401, end: 19990501
  6. CAP SAQUINAVIR [Suspect]
     Indication: HIV INFECTION
     Dosage: 3600 MG/ DAILY PO
     Route: 048
     Dates: start: 19971001

REACTIONS (3)
  - ASEPTIC NECROSIS BONE [None]
  - BLOOD CHOLESTEROL INCREASED [None]
  - BLOOD TRIGLYCERIDES INCREASED [None]
